FAERS Safety Report 9222397 (Version 1)
Quarter: 2013Q2

REPORT INFORMATION
  Report Type: Spontaneous
  Country: AE (occurrence: AE)
  Receive Date: 20130410
  Receipt Date: 20130410
  Transmission Date: 20140414
  Serious: Yes (Death, Hospitalization, Other)
  Sender: FDA-Public Use
  Company Number: AE-ELI_LILLY_AND_COMPANY-AE201304001040

PATIENT
  Age: 29 Year
  Sex: Female
  Weight: 51 kg

DRUGS (3)
  1. OLANZAPINE [Suspect]
     Indication: PSYCHOTIC DISORDER
     Dosage: 10 MG, BID
     Route: 030
     Dates: start: 20130321
  2. HALDOL [Concomitant]
     Indication: AGITATION
     Dosage: 5 MG, SINGLE
     Route: 030
     Dates: start: 20130322, end: 20130322
  3. PROMETHAZINE [Concomitant]
     Dosage: 50 MG, SINGLE
     Route: 030
     Dates: start: 20130322, end: 20130322

REACTIONS (5)
  - Cardiac arrest [Fatal]
  - Tachycardia [Unknown]
  - Blood potassium decreased [Unknown]
  - Agitation [Not Recovered/Not Resolved]
  - Restlessness [Unknown]
